FAERS Safety Report 13303941 (Version 1)
Quarter: 2017Q1

REPORT INFORMATION
  Report Type: Not Available
  Country: PL (occurrence: PL)
  Receive Date: 20170307
  Receipt Date: 20170307
  Transmission Date: 20170428
  Serious: Yes (Other)
  Sender: FDA-Public Use
  Company Number: PL--2017-PL-000001

PATIENT
  Age: 61 Year
  Sex: Female

DRUGS (4)
  1. ZOLPIDEM TARTRATE BRAND UNSPECIFIED (VIVIMED) [Suspect]
     Active Substance: ZOLPIDEM TARTRATE
     Indication: INSOMNIA
     Dosage: 10 MG/DAY
  2. SIBUTRAMINE [Suspect]
     Active Substance: SIBUTRAMINE
     Indication: OBESITY
     Dosage: 15 MG/DAY
  3. RISPERIDONE. [Concomitant]
     Active Substance: RISPERIDONE
     Dosage: 1 MG/DAY
  4. FLUVOXAMINE [Concomitant]
     Active Substance: FLUVOXAMINE
     Dosage: 50MG/DAY

REACTIONS (4)
  - Anxiety [Recovered/Resolved]
  - Abnormal behaviour [Recovered/Resolved]
  - Psychomotor hyperactivity [None]
  - Amnesia [Recovered/Resolved]
